FAERS Safety Report 11470237 (Version 2)
Quarter: 2015Q3

REPORT INFORMATION
  Report Type: Spontaneous
  Country: US (occurrence: US)
  Receive Date: 20150903
  Receipt Date: 20150903
  Transmission Date: 20151125
  Serious: No
  Sender: FDA-Public Use
  Company Number: US-ELI_LILLY_AND_COMPANY-US201111006251

PATIENT
  Age: 49 Year
  Sex: Female

DRUGS (2)
  1. ANTIHYPERTENSIVES [Concomitant]
     Active Substance: UNSPECIFIED INGREDIENT
     Indication: BLOOD PRESSURE MEASUREMENT
  2. CYMBALTA [Suspect]
     Active Substance: DULOXETINE HYDROCHLORIDE
     Indication: ANXIETY
     Dosage: 30 MG, QD

REACTIONS (13)
  - Crying [Unknown]
  - Tension [Unknown]
  - Insomnia [Unknown]
  - Dysphagia [Unknown]
  - Panic attack [Unknown]
  - Palpitations [Unknown]
  - Feeling abnormal [Unknown]
  - Mental impairment [Unknown]
  - Peripheral vascular disorder [Unknown]
  - Drug ineffective [Unknown]
  - Drug hypersensitivity [Unknown]
  - Anxiety [Not Recovered/Not Resolved]
  - Peripheral coldness [Unknown]
